FAERS Safety Report 9200009 (Version 7)
Quarter: 2013Q3

REPORT INFORMATION
  Report Type: Spontaneous
  Country: US (occurrence: US)
  Receive Date: 20130329
  Receipt Date: 20130725
  Transmission Date: 20140515
  Serious: Yes (Hospitalization, Other)
  Sender: FDA-Public Use
  Company Number: US-GLAXOSMITHKLINE-A1017780A

PATIENT
  Age: 16 Year
  Sex: Male

DRUGS (10)
  1. FLOLAN [Suspect]
     Indication: PULMONARY ARTERIAL HYPERTENSION
     Dosage: 65NGKM CONTINUOUS
     Route: 042
     Dates: start: 20090702, end: 20130622
  2. TEGADERM [Suspect]
     Route: 061
  3. REVATIO [Concomitant]
     Dosage: 20MG THREE TIMES PER DAY
     Route: 048
  4. LETAIRIS [Concomitant]
     Dosage: 5MG PER DAY
     Route: 048
  5. LASIX [Concomitant]
  6. ASA [Concomitant]
  7. ALDACTONE [Concomitant]
  8. PREVACID [Concomitant]
  9. ADVAIR [Concomitant]
  10. MILRINONE [Concomitant]

REACTIONS (7)
  - Ventricular tachycardia [Recovered/Resolved]
  - Right ventricular failure [Recovered/Resolved]
  - Pulmonary hypertension [Recovered/Resolved]
  - Heart and lung transplant [Recovered/Resolved]
  - Device leakage [Recovered/Resolved]
  - Infusion site swelling [Recovered/Resolved]
  - Dermatitis contact [Recovered/Resolved]
